FAERS Safety Report 6173051-7 (Version None)
Quarter: 2009Q2

REPORT INFORMATION
  Report Type: 
  Country: None (occurrence: None)
  Receive Date: 20090428
  Receipt Date: 20090413
  Transmission Date: 20091009
  Serious: Yes (Hospitalization, Other)
  Sender: FDA-Public Use
  Company Number: ADE2009-0581

PATIENT
  Age: 36 Year
  Sex: Female

DRUGS (3)
  1. STAVUDINE [Suspect]
     Indication: HIV INFECTION
  2. LAMIVUDINE [Suspect]
     Indication: HIV INFECTION
  3. ANTIRETROVIRAL THERAPY (ART) [Concomitant]

REACTIONS (12)
  - ABASIA [None]
  - BLOOD CULTURE POSITIVE [None]
  - CRYPTOCOCCOSIS [None]
  - CSF CULTURE POSITIVE [None]
  - GAIT DISTURBANCE [None]
  - HYPERREFLEXIA [None]
  - HYPOAESTHESIA [None]
  - PARESIS [None]
  - PYREXIA [None]
  - RADICULITIS [None]
  - SALMONELLA SEPSIS [None]
  - SPINAL CORD DISORDER [None]
